FAERS Safety Report 21723033 (Version 1)
Quarter: 2022Q4

REPORT INFORMATION
  Report Type: Spontaneous
  Country: US (occurrence: US)
  Receive Date: 20221213
  Receipt Date: 20221213
  Transmission Date: 20230113
  Serious: Yes (Other)
  Sender: FDA-Public Use
  Company Number: US-MYLANLABS-2022M1137582

PATIENT
  Age: 26 Year
  Sex: Female

DRUGS (1)
  1. METOPROLOL [Suspect]
     Active Substance: METOPROLOL
     Indication: Supraventricular extrasystoles
     Dosage: UNK; INITIALLY RECEIVED AS NEEDED, THEN THE DOSE WAS INCREASED
     Route: 065

REACTIONS (1)
  - Drug ineffective [Unknown]
